FAERS Safety Report 4576962-9 (Version None)
Quarter: 2005Q1

REPORT INFORMATION
  Report Type: 
  Country: None (occurrence: None)
  Receive Date: 20050127
  Receipt Date: 20050127
  Transmission Date: 20050727
  Serious: Yes (Death)
  Sender: FDA-Public Use
  Company Number: None

PATIENT
  Age: 77 Year
  Sex: Female
  Weight: 81.6475 kg

DRUGS (7)
  1. CIPRO [Suspect]
     Indication: INFECTION
     Dosage: 1X DAILY P.O.
     Route: 048
     Dates: start: 20040801
  2. CIPRO [Suspect]
     Indication: URINARY BLADDER POLYP
     Dosage: 1X DAILY P.O.
     Route: 048
     Dates: start: 20040801
  3. ALLEGRA [Concomitant]
  4. RHINOCORT [Concomitant]
  5. AFRIN [Concomitant]
  6. GUAIFENESIN [Concomitant]
  7. MULTIVITAMIN [Concomitant]

REACTIONS (7)
  - ANAPHYLACTIC REACTION [None]
  - DYSPNOEA [None]
  - HYPERSENSITIVITY [None]
  - PHARYNGOLARYNGEAL PAIN [None]
  - SEPSIS [None]
  - SINUS DISORDER [None]
  - THROAT TIGHTNESS [None]
